FAERS Safety Report 8445995-4 (Version None)
Quarter: 2012Q2

REPORT INFORMATION
  Report Type: 
  Country: None (occurrence: None)
  Receive Date: 20120618
  Receipt Date: 20120610
  Transmission Date: 20120825
  Serious: Yes (Death)
  Sender: FDA-Public Use
  Company Number: AT-ROCHE-1073397

PATIENT
  Sex: Male

DRUGS (8)
  1. MABTHERA [Suspect]
     Dosage: WEEKLY
     Route: 042
     Dates: start: 20100901, end: 20101001
  2. DOXORUBICIN HCL [Concomitant]
  3. PREDNISOLONE [Concomitant]
  4. VINCRISTINE [Concomitant]
  5. MABTHERA [Suspect]
     Dosage: EVERY 2 MONTHS
     Route: 042
     Dates: start: 20101201, end: 20110201
  6. CYCLOPHOSPHAMIDE [Concomitant]
  7. MABTHERA [Suspect]
     Indication: DIFFUSE LARGE B-CELL LYMPHOMA
     Dosage: R-CHOP EVERY 3 WEEKS
     Route: 042
     Dates: start: 20100401, end: 20100701
  8. BENDAMUSTINE HYDROCHLORIDE [Concomitant]
     Indication: DIFFUSE LARGE B-CELL LYMPHOMA
     Dosage: WEEKLY
     Route: 042
     Dates: start: 20110401, end: 20110901

REACTIONS (1)
  - PROGRESSIVE MULTIFOCAL LEUKOENCEPHALOPATHY [None]
